FAERS Safety Report 4686075-3 (Version None)
Quarter: 2005Q2

REPORT INFORMATION
  Report Type: 
  Country: None (occurrence: None)
  Receive Date: 20050609
  Receipt Date: 20050531
  Transmission Date: 20051028
  Serious: Yes (Hospitalization)
  Sender: FDA-Public Use
  Company Number: 200511869FR

PATIENT
  Age: 71 Year
  Sex: Female

DRUGS (7)
  1. HYDROCORTISONE [Suspect]
     Route: 048
     Dates: start: 20041101
  2. PLAVIX [Concomitant]
     Route: 048
  3. ESBERIVEN [Concomitant]
  4. ALDACTONE [Concomitant]
  5. BRICANYL [Concomitant]
  6. ATROVENT [Concomitant]
  7. SERETIDE [Concomitant]

REACTIONS (2)
  - FEMORAL NECK FRACTURE [None]
  - PATHOLOGICAL FRACTURE [None]
